FAERS Safety Report 17761962 (Version 1)
Quarter: 2020Q2

REPORT INFORMATION
  Report Type: Spontaneous
  Country: US (occurrence: US)
  Receive Date: 20200508
  Receipt Date: 20200508
  Transmission Date: 20200714
  Serious: Yes (Other)
  Sender: FDA-Public Use
  Company Number: US-AKORN PHARMACEUTICALS-2020AKN00576

PATIENT
  Age: 16 Year
  Sex: Male
  Weight: 68.48 kg

DRUGS (1)
  1. MYORISAN [Suspect]
     Active Substance: ISOTRETINOIN
     Indication: ACNE CYSTIC
     Dosage: 30 MG, 2X/DAY
     Route: 048
     Dates: start: 20200211, end: 20200424

REACTIONS (3)
  - Anger [Unknown]
  - Intentional self-injury [Unknown]
  - Stress [Unknown]

NARRATIVE: CASE EVENT DATE: 2020
